FAERS Safety Report 10230970 (Version 1)
Quarter: 2014Q2

REPORT INFORMATION
  Report Type: Spontaneous
  Country: US (occurrence: None)
  Receive Date: 20140610
  Receipt Date: 20140610
  Transmission Date: 20141212
  Serious: Yes (Disabling, Other)
  Sender: FDA-Public Use
  Company Number: None

PATIENT
  Age: 50 Year
  Sex: Male
  Weight: 99.79 kg

DRUGS (1)
  1. LIPITOR [Suspect]
     Indication: BLOOD CHOLESTEROL INCREASED
     Dosage: 1  ONCE DAILY, TAKEN BY MOUTH
     Route: 048

REACTIONS (12)
  - Arthralgia [None]
  - Myalgia [None]
  - Arthralgia [None]
  - Pain in extremity [None]
  - Sleep disorder due to general medical condition, mixed type [None]
  - Abasia [None]
  - Aphagia [None]
  - Impaired work ability [None]
  - Gout [None]
  - Swelling [None]
  - Erythema [None]
  - Therapy cessation [None]
